FAERS Safety Report 5027883-9 (Version None)
Quarter: 2006Q2

REPORT INFORMATION
  Report Type: 
  Country: None (occurrence: None)
  Receive Date: 20060616
  Receipt Date: 20060601
  Transmission Date: 20061013
  Serious: Yes (Hospitalization)
  Sender: FDA-Public Use
  Company Number: US-AMGEN-US181929

PATIENT
  Age: 50 Year
  Sex: Male

DRUGS (3)
  1. PROCRIT [Suspect]
     Indication: PRE-EXISTING DISEASE
     Route: 065
  2. PEG-INTRON [Suspect]
     Route: 058
     Dates: start: 20060410
  3. RIBAVIRIN [Suspect]
     Route: 048
     Dates: start: 20060410

REACTIONS (4)
  - CELLULITIS [None]
  - COUGH [None]
  - INJECTION SITE CELLULITIS [None]
  - STAPHYLOCOCCAL INFECTION [None]
